FAERS Safety Report 8818903 (Version 8)
Quarter: 2014Q1

REPORT INFORMATION
  Report Type: Report from Study
  Country: US (occurrence: US)
  Receive Date: 20121001
  Receipt Date: 20140213
  Transmission Date: 20141002
  Serious: Yes (Other)
  Sender: FDA-Public Use
  Company Number: PHEH2012US019032

PATIENT
  Sex: Female

DRUGS (3)
  1. EXTAVIA [Suspect]
     Indication: MULTIPLE SCLEROSIS
     Dosage: 0.25 MG, QOD
     Route: 058
     Dates: start: 20120719
  2. ADVIL MIGRAINE [Concomitant]
     Indication: MIGRAINE
     Dosage: UNK UKN, UNK
  3. ADVIL MIGRAINE [Concomitant]
     Indication: OPTIC NEURITIS

REACTIONS (19)
  - Optic neuritis [Not Recovered/Not Resolved]
  - Multiple sclerosis relapse [Not Recovered/Not Resolved]
  - Hot flush [Not Recovered/Not Resolved]
  - Muscular weakness [Not Recovered/Not Resolved]
  - Migraine [Not Recovered/Not Resolved]
  - Gastric disorder [Not Recovered/Not Resolved]
  - Temperature regulation disorder [Not Recovered/Not Resolved]
  - Erythema [Not Recovered/Not Resolved]
  - Visual impairment [Not Recovered/Not Resolved]
  - Contusion [Recovering/Resolving]
  - Paraesthesia [Not Recovered/Not Resolved]
  - Hypoaesthesia [Not Recovered/Not Resolved]
  - Malaise [Not Recovered/Not Resolved]
  - Hypersensitivity [Not Recovered/Not Resolved]
  - Injection site reaction [Recovering/Resolving]
  - Injection site bruising [Recovering/Resolving]
  - Injection site pain [Recovering/Resolving]
  - Injection site discolouration [Recovering/Resolving]
  - Injection site erythema [Recovering/Resolving]
